APPROVED DRUG PRODUCT: ERLOTINIB HYDROCHLORIDE
Active Ingredient: ERLOTINIB HYDROCHLORIDE
Strength: EQ 25MG BASE
Dosage Form/Route: TABLET;ORAL
Application: A208396 | Product #001
Applicant: APOTEX INC
Approved: Nov 5, 2019 | RLD: No | RS: No | Type: DISCN